FAERS Safety Report 8562425 (Version 4)
Quarter: 2012Q4

REPORT INFORMATION
  Report Type: Spontaneous
  Country: JP (occurrence: None)
  Receive Date: 20120508
  Receipt Date: 20121002
  Transmission Date: 20130627
  Serious: Yes (Hospitalization)
  Sender: FDA-Public Use
  Company Number: TPA2012A02561

PATIENT
  Age: 37 Year
  Sex: Male

DRUGS (1)
  1. FEBUXOSTAT [Suspect]
     Indication: HYPERURICAEMIA
     Route: 048
     Dates: start: 20120314, end: 20120420

REACTIONS (9)
  - Drug-induced liver injury [None]
  - Nausea [None]
  - Vomiting [None]
  - Malaise [None]
  - Aspartate aminotransferase increased [None]
  - Alanine aminotransferase increased [None]
  - Hepatomegaly [None]
  - Hepatic necrosis [None]
  - Cholestasis [None]
